FAERS Safety Report 8593599 (Version 3)
Quarter: 2013Q4

REPORT INFORMATION
  Report Type: Spontaneous
  Country: US (occurrence: US)
  Receive Date: 20120604
  Receipt Date: 20131129
  Transmission Date: 20140711
  Serious: Yes (Hospitalization, Disabling, Other)
  Sender: FDA-Public Use
  Company Number: US-ASTRAZENECA-2012SE34987

PATIENT
  Age: 41 Year
  Sex: Female
  Weight: 58.1 kg

DRUGS (32)
  1. NEXIUM [Suspect]
     Indication: FLATULENCE
     Route: 048
     Dates: start: 1995
  2. NEXIUM [Suspect]
     Indication: GASTROOESOPHAGEAL REFLUX DISEASE
     Route: 048
     Dates: start: 1995
  3. NEXIUM [Suspect]
     Indication: FLATULENCE
     Route: 048
     Dates: start: 20020906
  4. NEXIUM [Suspect]
     Indication: GASTROOESOPHAGEAL REFLUX DISEASE
     Route: 048
     Dates: start: 20020906
  5. NEXIUM [Suspect]
     Indication: FLATULENCE
     Route: 048
     Dates: start: 20040805
  6. NEXIUM [Suspect]
     Indication: GASTROOESOPHAGEAL REFLUX DISEASE
     Route: 048
     Dates: start: 20040805
  7. NEXIUM [Suspect]
     Indication: FLATULENCE
     Route: 048
     Dates: start: 20120323
  8. NEXIUM [Suspect]
     Indication: GASTROOESOPHAGEAL REFLUX DISEASE
     Route: 048
     Dates: start: 20120323
  9. PROTONIX [Concomitant]
     Dates: start: 2009
  10. SYNTHROID [Concomitant]
     Dates: start: 1992, end: 20130424
  11. TOPAMAX [Concomitant]
     Dosage: 50 MG ONE IN MORNING AND ONE IN EVENING
     Dates: start: 20110506
  12. FISH OIL OMEGA-3 [Concomitant]
     Dosage: 1200 SOFTGEL ONE IN MORNING
  13. CALCIUM W/VITAMIN D [Concomitant]
     Dosage: 1200 AND D THREE IN MORNING
  14. BONE HEALTH [Concomitant]
  15. BAYER LOW DOSE [Concomitant]
     Dosage: 81 MG ONE IN MORNING
  16. PRILOSEC OTC [Concomitant]
     Dosage: 20.6 ONE IN MORNING
  17. PENNSAID [Concomitant]
  18. AMITRIPTYLIN [Concomitant]
  19. AZITHROMYCIN [Concomitant]
     Dosage: 250 MG TABLET TAKE AS DIRECTED
  20. AZITHROMYCIN [Concomitant]
     Dosage: TAKE 2 TABLETS BY MOUTH ON DAY 1 THEN 1 TABLET ON DAY 2 THROUGH 5
     Dates: start: 20100323
  21. NUVARING VAGINAL RING [Concomitant]
     Dosage: INSERT ONE RING VAGINALLY FOR 3 WEEKS
     Dates: start: 20100226
  22. NAPROXEN SODIUM [Concomitant]
     Dosage: 550 MG TABLET, TAKE 1 TABLET BY MOUTH EVERY 12 HOURS IF NEEDED WITH FOOD
     Dates: start: 20100218
  23. SULFAMETHOXAZOLE-TMP DS [Concomitant]
     Dosage: TAKE 1 TABLET BY MOUTH EVERY TWICE A DAY FOR 3 DAYS
     Dates: start: 20110720
  24. PROMETHAZINE [Concomitant]
     Dosage: TAKE 1 TABLET BY MOUTH EVERY FOUR HOURS IF NEEDED
     Dates: start: 20110720
  25. AMOXYCILLIN [Concomitant]
     Dates: start: 20110612
  26. LANSOPRAZOLE DR [Concomitant]
     Route: 048
     Dates: start: 20100109
  27. TRICOR [Concomitant]
     Dates: start: 20100109
  28. BENICAR [Concomitant]
     Dates: start: 20100208
  29. VIT D2 [Concomitant]
     Dosage: 1.25 MG (500 UNIT) TAKE 1 CAPSULE ONCE A WEEK AS DIRECTED
     Dates: start: 20100817
  30. LOSARTAN POTASSIUM [Concomitant]
     Dates: start: 20110502
  31. LESCOL [Concomitant]
     Dates: start: 20110707
  32. TRAMADOL HCL [Concomitant]
     Dosage: TAKE 1 TABLET FOUR TIMES A DAY IF NEEDED
     Dates: start: 20100519

REACTIONS (7)
  - Osteoporosis [Unknown]
  - Complex regional pain syndrome [Unknown]
  - Pain [Unknown]
  - Multiple fractures [Unknown]
  - Foot fracture [Unknown]
  - Bone density decreased [Unknown]
  - Depression [Unknown]
